FAERS Safety Report 9952047 (Version 1)
Quarter: 2014Q1

REPORT INFORMATION
  Report Type: Report from Study
  Country: US (occurrence: US)
  Receive Date: 20140304
  Receipt Date: 20140304
  Transmission Date: 20141002
  Serious: Yes (Hospitalization)
  Sender: FDA-Public Use
  Company Number: US-ABBVIE-13P-163-1078069-00

PATIENT
  Sex: Male
  Weight: 129.39 kg

DRUGS (6)
  1. HUMIRA [Suspect]
     Indication: RHEUMATOID ARTHRITIS
     Dates: end: 201202
  2. LASIX [Concomitant]
     Indication: MYOCARDIAL INFARCTION
  3. LASIX [Concomitant]
     Indication: CARDIAC FAILURE CONGESTIVE
     Dates: start: 2011
  4. ZYRTEC [Concomitant]
     Indication: HYPERSENSITIVITY
  5. ORENCIA [Concomitant]
     Indication: RHEUMATOID ARTHRITIS
     Dates: start: 2011
  6. ORENCIA [Concomitant]
     Dates: start: 20130402

REACTIONS (1)
  - Cardiac failure congestive [Recovered/Resolved]
